FAERS Safety Report 7167848-4 (Version None)
Quarter: 2010Q4

REPORT INFORMATION
  Report Type: 
  Country: None (occurrence: None)
  Receive Date: 20101216
  Receipt Date: 20101210
  Transmission Date: 20110411
  Serious: Yes (Other)
  Sender: FDA-Public Use
  Company Number: US-BAYER-2010-004265

PATIENT
  Sex: Female

DRUGS (1)
  1. CIPRO [Suspect]
     Indication: ANTIBIOTIC THERAPY
     Dosage: UNK
     Dates: start: 20101101, end: 20101206

REACTIONS (6)
  - ANXIETY [None]
  - CONVULSION [None]
  - HYPOAESTHESIA [None]
  - MUSCLE SPASMS [None]
  - PARAESTHESIA [None]
  - TREMOR [None]
